FAERS Safety Report 12110752 (Version 2)
Quarter: 2016Q2

REPORT INFORMATION
  Report Type: Spontaneous
  Country: US (occurrence: US)
  Receive Date: 20160224
  Receipt Date: 20160405
  Transmission Date: 20160815
  Serious: Yes (Hospitalization)
  Sender: FDA-Public Use
  Company Number: US-BAUSCH-BL-2016-004390

PATIENT
  Age: 31 Year
  Sex: Female

DRUGS (24)
  1. ERYTHROMYCIN. [Suspect]
     Active Substance: ERYTHROMYCIN
     Indication: PYELONEPHRITIS
     Route: 065
  2. VECURONIUM [Suspect]
     Active Substance: VECURONIUM BROMIDE
     Dosage: EVERY HOUR
     Route: 065
  3. VECURONIUM [Suspect]
     Active Substance: VECURONIUM BROMIDE
     Route: 065
  4. BETAMETHASONE. [Suspect]
     Active Substance: BETAMETHASONE
     Indication: MATERNAL THERAPY TO ENHANCE FOETAL LUNG MATURITY
     Route: 065
  5. TRANEXAMIC ACID. [Suspect]
     Active Substance: TRANEXAMIC ACID
     Indication: ACCIDENTAL EXPOSURE TO PRODUCT
  6. BUPIVACAINE HYDROCHLORIDE. [Suspect]
     Active Substance: BUPIVACAINE HYDROCHLORIDE
     Indication: SPINAL ANAESTHESIA
     Route: 037
  7. FENTANYL. [Suspect]
     Active Substance: FENTANYL
     Indication: STATUS EPILEPTICUS
     Dosage: EVERY HOUR
     Route: 065
  8. MANNITOL. [Suspect]
     Active Substance: MANNITOL
     Indication: STATUS EPILEPTICUS
     Dosage: EVERY HOUE
     Route: 065
  9. LABETALOL [Suspect]
     Active Substance: LABETALOL\LABETALOL HYDROCHLORIDE
     Indication: HYPERTENSION
     Route: 065
  10. METRONIDAZOLE. [Suspect]
     Active Substance: METRONIDAZOLE
     Indication: PYELONEPHRITIS
     Route: 065
  11. CEFUROXIME SALT NOT SPECIFIED [Suspect]
     Active Substance: CEFUROXIME
     Indication: PYELONEPHRITIS
     Route: 042
  12. THIOPENTAL SODIUM. [Suspect]
     Active Substance: THIOPENTAL SODIUM
     Dosage: EVERY HOUR
     Route: 065
  13. SUXAMETHONIUM [Suspect]
     Active Substance: SUCCINYLCHOLINE
     Indication: GENERAL ANAESTHESIA
  14. PETHIDINE HYDROCHLORIDE [Concomitant]
     Active Substance: MEPERIDINE HYDROCHLORIDE
     Indication: PRODUCT USED FOR UNKNOWN INDICATION
  15. DEXAMETHASONE SALT NOT SPECIFIED [Suspect]
     Active Substance: DEXAMETHASONE
     Indication: STATUS EPILEPTICUS
     Route: 040
  16. VECURONIUM [Suspect]
     Active Substance: VECURONIUM BROMIDE
     Indication: MUSCLE RELAXANT THERAPY
     Route: 065
  17. VECURONIUM [Suspect]
     Active Substance: VECURONIUM BROMIDE
     Route: 065
  18. PROPOFOL. [Concomitant]
     Active Substance: PROPOFOL
     Indication: PRODUCT USED FOR UNKNOWN INDICATION
  19. DIAZEPAM. [Suspect]
     Active Substance: DIAZEPAM
     Indication: MUSCLE RELAXANT THERAPY
     Route: 040
  20. AMIODARONE HYDROCHLORIDE. [Suspect]
     Active Substance: AMIODARONE HYDROCHLORIDE
     Indication: VENTRICULAR TACHYCARDIA
     Route: 065
  21. THIOPENTAL SODIUM. [Suspect]
     Active Substance: THIOPENTAL SODIUM
     Indication: ANAESTHESIA
     Route: 065
  22. MIDAZOLAM [Suspect]
     Active Substance: MIDAZOLAM\MIDAZOLAM HYDROCHLORIDE
     Indication: STATUS EPILEPTICUS
     Dosage: EVERY HOUR
     Route: 065
  23. PHENYTOIN SODIUM. [Suspect]
     Active Substance: PHENYTOIN SODIUM
     Indication: STATUS EPILEPTICUS
     Dosage: EVERY 8 HOURS
     Route: 040
  24. SUXAMETHONIUM [Suspect]
     Active Substance: SUCCINYLCHOLINE
     Indication: MUSCLE RELAXANT THERAPY
     Route: 065

REACTIONS (6)
  - Ventricular tachycardia [Recovered/Resolved]
  - Pain [Recovering/Resolving]
  - Status epilepticus [Recovered/Resolved]
  - Myoclonus [Recovering/Resolving]
  - Haemodynamic instability [Recovering/Resolving]
  - Exposure during pregnancy [Unknown]
